FAERS Safety Report 9590400 (Version 1)
Quarter: 2013Q4

REPORT INFORMATION
  Report Type: Spontaneous
  Country: US (occurrence: US)
  Receive Date: 20131003
  Receipt Date: 20131003
  Transmission Date: 20140711
  Serious: Yes (Hospitalization, Other)
  Sender: FDA-Public Use
  Company Number: US-JNJFOC-20130917020

PATIENT
  Age: 14 Year
  Sex: Female

DRUGS (1)
  1. IBUPROFEN [Suspect]
     Indication: DYSMENORRHOEA
     Dosage: 3 TABLETS 2 WEEKS EARLIER.
     Route: 065

REACTIONS (1)
  - Tubulointerstitial nephritis [Recovered/Resolved]
